FAERS Safety Report 20863886 (Version 6)
Quarter: 2023Q2

REPORT INFORMATION
  Report Type: Report from Study
  Country: US (occurrence: US)
  Receive Date: 20220523
  Receipt Date: 20230425
  Transmission Date: 20230722
  Serious: Yes (Hospitalization)
  Sender: FDA-Public Use
  Company Number: US-LUNDBECK-DKLU3048255

PATIENT
  Age: 31 Year
  Sex: Female

DRUGS (1)
  1. VYEPTI [Suspect]
     Active Substance: EPTINEZUMAB-JJMR
     Indication: Migraine
     Route: 041
     Dates: start: 20200922

REACTIONS (4)
  - Spinal fusion surgery [Recovering/Resolving]
  - Migraine [Recovering/Resolving]
  - Treatment delayed [Unknown]
  - Fatigue [Unknown]

NARRATIVE: CASE EVENT DATE: 20221215
